FAERS Safety Report 8324772-9 (Version None)
Quarter: 2012Q2

REPORT INFORMATION
  Report Type: 
  Country: None (occurrence: None)
  Receive Date: 20120501
  Receipt Date: 20120427
  Transmission Date: 20120825
  Serious: Yes (Hospitalization, Other)
  Sender: FDA-Public Use
  Company Number: PHHY2012CA024110

PATIENT
  Sex: Male

DRUGS (4)
  1. ZOLEDRONOC ACID [Suspect]
     Indication: OSTEOPOROSIS
     Route: 042
     Dates: start: 20100319
  2. ZOLEDRONOC ACID [Suspect]
     Route: 042
     Dates: start: 20110505
  3. RITUXAN [Concomitant]
  4. ANTIBIOTICS [Concomitant]

REACTIONS (6)
  - NEOPLASM MALIGNANT [None]
  - MALAISE [None]
  - NECK PAIN [None]
  - PAIN IN EXTREMITY [None]
  - PNEUMONIA [None]
  - FEELING ABNORMAL [None]
